FAERS Safety Report 21736888 (Version 1)
Quarter: 2022Q4

REPORT INFORMATION
  Report Type: Spontaneous
  Country: IT (occurrence: IT)
  Receive Date: 20221216
  Receipt Date: 20221216
  Transmission Date: 20230112
  Serious: Yes (Hospitalization)
  Sender: FDA-Public Use
  Company Number: IT-STRIDES ARCOLAB LIMITED-2022SP016890

PATIENT
  Age: 9 Year
  Sex: Female

DRUGS (3)
  1. AMOXICILLIN [Suspect]
     Active Substance: AMOXICILLIN
     Indication: Drug provocation test
     Dosage: UNK, SYRUP
     Route: 065
  2. AMOXICILLIN [Suspect]
     Active Substance: AMOXICILLIN
     Indication: Pharyngitis streptococcal
     Dosage: 25 MILLIGRAM/KILOGRAM, ADMINISTERED EVERY 30 MINUTES STARTING AT 1.5% OF THE REGULAR DOSE (25 MG/KG
     Route: 065
  3. AMOXICILLIN [Suspect]
     Active Substance: AMOXICILLIN
     Dosage: UNK, SECOND DPT WITH AMOXICILLIN
     Route: 065

REACTIONS (3)
  - Enterocolitis [Recovered/Resolved]
  - Rash maculo-papular [Unknown]
  - Rash [Unknown]
